FAERS Safety Report 7915132-0 (Version None)
Quarter: 2011Q4

REPORT INFORMATION
  Report Type: 
  Country: None (occurrence: None)
  Receive Date: 20111115
  Receipt Date: 20111109
  Transmission Date: 20120403
  Serious: Yes (Hospitalization)
  Sender: FDA-Public Use
  Company Number: US-ACTELION-A-US2010-35917

PATIENT

DRUGS (2)
  1. TRACLEER [Suspect]
     Indication: PULMONARY ARTERIAL HYPERTENSION
     Dosage: UNK
     Route: 048
     Dates: start: 20070208
  2. OXYGEN [Concomitant]

REACTIONS (4)
  - FATIGUE [None]
  - DYSPNOEA [None]
  - OEDEMA [None]
  - NASOPHARYNGITIS [None]
